FAERS Safety Report 8482798-9 (Version None)
Quarter: 2012Q3

REPORT INFORMATION
  Report Type: 
  Country: None (occurrence: None)
  Receive Date: 20120702
  Receipt Date: 20120628
  Transmission Date: 20120928
  Serious: Yes (Death)
  Sender: FDA-Public Use
  Company Number: PHHY2012ES055644

PATIENT
  Age: 67 Year
  Sex: Female

DRUGS (5)
  1. SULFAMETHOXAZOLE AND TRIMETHOPRIM [Suspect]
  2. CEFTRIAXONE [Suspect]
  3. METHYLPREDNISOLONE [Suspect]
     Dosage: 240 MG, DAILY
  4. CLARITHROMYCIN [Suspect]
  5. METHYLPREDNISOLONE [Suspect]
     Dosage: 1 G, DAILY
     Route: 040

REACTIONS (2)
  - PNEUMONITIS [None]
  - DRUG INEFFECTIVE [None]
